FAERS Safety Report 18117604 (Version 1)
Quarter: 2020Q3

REPORT INFORMATION
  Report Type: Report from Study
  Country: CR (occurrence: CR)
  Receive Date: 20200806
  Receipt Date: 20200806
  Transmission Date: 20201103
  Serious: Yes (Hospitalization, Other)
  Sender: FDA-Public Use
  Company Number: NVSC2020CR215575

PATIENT
  Age: 61 Year
  Sex: Male

DRUGS (2)
  1. VYMADA [Suspect]
     Active Substance: SACUBITRIL\VALSARTAN
     Indication: BLOOD PRESSURE INADEQUATELY CONTROLLED
     Route: 065
  2. VYMADA [Suspect]
     Active Substance: SACUBITRIL\VALSARTAN
     Dosage: 50 MG
     Route: 065

REACTIONS (8)
  - Hypertension [Unknown]
  - Diabetes mellitus [Unknown]
  - Cardiac failure [Unknown]
  - Gait disturbance [Unknown]
  - Electrolyte imbalance [Unknown]
  - Illness [Unknown]
  - Renal failure [Unknown]
  - Product prescribing error [Unknown]
